FAERS Safety Report 8046202-7 (Version None)
Quarter: 2012Q1

REPORT INFORMATION
  Report Type: 
  Country: None (occurrence: None)
  Receive Date: 20120113
  Receipt Date: 20120111
  Transmission Date: 20120608
  Serious: Yes (Hospitalization, Other)
  Sender: FDA-Public Use
  Company Number: VE-PFIZER INC-2011309819

PATIENT
  Age: 54 Year
  Sex: Female

DRUGS (3)
  1. LIPITOR [Suspect]
     Indication: HYPERCHOLESTEROLAEMIA
     Dosage: 40 MG, UNK
     Route: 048
     Dates: start: 20111201, end: 20111201
  2. CIPROFIBRATE [Concomitant]
     Dosage: 100 MG, UNK
     Route: 048
     Dates: start: 20110101
  3. GALVUS [Concomitant]
     Indication: DIABETES MELLITUS
     Dosage: UNK
     Route: 048
     Dates: start: 20110101, end: 20120101

REACTIONS (2)
  - HYPERGLYCAEMIA [None]
  - RETINOPATHY [None]
